FAERS Safety Report 10202091 (Version 2)
Quarter: 2014Q2

REPORT INFORMATION
  Report Type: Spontaneous
  Country: US (occurrence: US)
  Receive Date: 20140528
  Receipt Date: 20140528
  Transmission Date: 20141212
  Serious: No
  Sender: FDA-Public Use
  Company Number: US-BRISTOL-MYERS SQUIBB COMPANY-19908730

PATIENT
  Age: 71 Year
  Sex: Male

DRUGS (2)
  1. METFORMIN HCL [Suspect]
     Indication: DIABETES MELLITUS
     Route: 048
  2. GLIPIZIDE [Concomitant]

REACTIONS (6)
  - Abdominal discomfort [Unknown]
  - Flatulence [Unknown]
  - Eructation [Unknown]
  - Oesophageal spasm [Unknown]
  - Dysphagia [Unknown]
  - Weight decreased [Unknown]
